FAERS Safety Report 12426745 (Version 6)
Quarter: 2021Q1

REPORT INFORMATION
  Report Type: Spontaneous
  Country: AU (occurrence: AU)
  Receive Date: 20160601
  Receipt Date: 20210315
  Transmission Date: 20210419
  Serious: Yes (Hospitalization, Other)
  Sender: FDA-Public Use
  Company Number: AU-ALEXION PHARMACEUTICALS INC-A201603749

PATIENT
  Age: 21 Year
  Sex: Male

DRUGS (2)
  1. SOLIRIS [Suspect]
     Active Substance: ECULIZUMAB
     Indication: ATYPICAL HAEMOLYTIC URAEMIC SYNDROME
     Dosage: UNK
     Route: 042
     Dates: start: 20160323
  2. SOLIRIS [Suspect]
     Active Substance: ECULIZUMAB
     Dosage: 1200 MG, Q2W
     Route: 042

REACTIONS (6)
  - Antibody test positive [Not Recovered/Not Resolved]
  - Malaise [Recovered/Resolved]
  - Renal vein thrombosis [Unknown]
  - Weight decreased [Recovering/Resolving]
  - Fluid overload [Recovered/Resolved]
  - Renal transplant failure [Unknown]

NARRATIVE: CASE EVENT DATE: 201605
